FAERS Safety Report 13899194 (Version 1)
Quarter: 2017Q3

REPORT INFORMATION
  Report Type: Spontaneous
  Country: DE (occurrence: DE)
  Receive Date: 20170824
  Receipt Date: 20170824
  Transmission Date: 20171127
  Serious: Yes (Other)
  Sender: FDA-Public Use
  Company Number: DE-PFIZER INC-2017358023

PATIENT
  Sex: Male

DRUGS (1)
  1. TREVILOR RETARD [Suspect]
     Active Substance: VENLAFAXINE HYDROCHLORIDE
     Dosage: UNK

REACTIONS (5)
  - Pyrexia [Unknown]
  - Contusion [Unknown]
  - Renal failure [Unknown]
  - Leukaemia [Unknown]
  - Gammopathy [Unknown]
